FAERS Safety Report 6222167-5 (Version None)
Quarter: 2009Q2

REPORT INFORMATION
  Report Type: 
  Country: None (occurrence: None)
  Receive Date: 20090611
  Receipt Date: 20090603
  Transmission Date: 20091009
  Serious: Yes (Hospitalization)
  Sender: FDA-Public Use
  Company Number: CH-ASTRAZENECA-2009PK01427

PATIENT
  Age: 35 Year
  Sex: Female

DRUGS (16)
  1. SEROQUEL [Suspect]
     Indication: PERSONALITY DISORDER
     Route: 048
     Dates: start: 20080915, end: 20080925
  2. SEROQUEL [Interacting]
     Route: 048
     Dates: start: 20080926
  3. SAROTEN [Interacting]
     Indication: PERSONALITY DISORDER
     Route: 048
     Dates: start: 20080828, end: 20081016
  4. SAROTEN [Interacting]
     Route: 048
     Dates: start: 20081017, end: 20081021
  5. SAROTEN [Interacting]
     Route: 048
     Dates: start: 20081022, end: 20081027
  6. EDRONAX [Interacting]
     Indication: PERSONALITY DISORDER
     Route: 048
     Dates: start: 20080829, end: 20080904
  7. EDRONAX [Interacting]
     Route: 048
     Dates: start: 20080905, end: 20080908
  8. EDRONAX [Interacting]
     Route: 048
     Dates: start: 20080909, end: 20080924
  9. EDRONAX [Interacting]
     Route: 048
     Dates: start: 20080925, end: 20081030
  10. EDRONAX [Interacting]
     Route: 048
     Dates: start: 20081031
  11. TEMESTA [Interacting]
     Indication: PERSONALITY DISORDER
     Route: 048
     Dates: start: 20080828
  12. LYRICA [Interacting]
     Indication: PERSONALITY DISORDER
     Route: 048
     Dates: start: 20080917, end: 20080918
  13. LYRICA [Interacting]
     Route: 048
     Dates: start: 20080919, end: 20081006
  14. LYRICA [Interacting]
     Route: 048
     Dates: start: 20081007, end: 20081008
  15. LYRICA [Interacting]
     Route: 048
     Dates: start: 20081009
  16. DESOGESTREL AND ETHINYL ESTRADIOL [Concomitant]
     Route: 048
     Dates: start: 20080828

REACTIONS (2)
  - CONSTIPATION [None]
  - DRUG INTERACTION [None]
